FAERS Safety Report 18631687 (Version 6)
Quarter: 2023Q1

REPORT INFORMATION
  Report Type: Spontaneous
  Country: US (occurrence: US)
  Receive Date: 20201218
  Receipt Date: 20230316
  Transmission Date: 20230417
  Serious: No
  Sender: FDA-Public Use
  Company Number: US-BIOGEN-2020BI00957795

PATIENT
  Age: 46 Year
  Sex: Female

DRUGS (1)
  1. TYSABRI [Suspect]
     Active Substance: NATALIZUMAB
     Indication: Multiple sclerosis
     Route: 050
     Dates: start: 20200903, end: 20210318

REACTIONS (11)
  - Sensory disturbance [Not Recovered/Not Resolved]
  - Aphasia [Not Recovered/Not Resolved]
  - Magnetic resonance imaging abnormal [Not Recovered/Not Resolved]
  - Motion sickness [Unknown]
  - Balance disorder [Unknown]
  - Central nervous system lesion [Unknown]
  - Vision blurred [Unknown]
  - Feeling abnormal [Recovered/Resolved with Sequelae]
  - Fall [Recovered/Resolved]
  - Dizziness [Recovered/Resolved with Sequelae]
  - Tremor [Unknown]

NARRATIVE: CASE EVENT DATE: 20200903
